FAERS Safety Report 4732961-5 (Version None)
Quarter: 2005Q3

REPORT INFORMATION
  Report Type: 
  Country: None (occurrence: None)
  Receive Date: 20050801
  Receipt Date: 20050721
  Transmission Date: 20060218
  Serious: Yes (Other)
  Sender: FDA-Public Use
  Company Number: 216279

PATIENT
  Sex: Male

DRUGS (1)
  1. RAPTIVA [Suspect]

REACTIONS (2)
  - HAEMOGLOBIN DECREASED [None]
  - LEUKAEMIA [None]
